FAERS Safety Report 5583591-7 (Version None)
Quarter: 2007Q4

REPORT INFORMATION
  Report Type: 
  Country: None (occurrence: None)
  Receive Date: 20071231
  Receipt Date: 20071219
  Transmission Date: 20080405
  Serious: Yes (Other)
  Sender: FDA-Public Use
  Company Number: 2007338081

PATIENT
  Age: 21 Month
  Sex: Female

DRUGS (1)
  1. BENADRYL [Suspect]
     Dates: start: 20071212

REACTIONS (2)
  - LOSS OF CONSCIOUSNESS [None]
  - OVERDOSE [None]
